FAERS Safety Report 21220003 (Version 1)
Quarter: 2022Q3

REPORT INFORMATION
  Report Type: Spontaneous
  Country: CN (occurrence: CN)
  Receive Date: 20220817
  Receipt Date: 20220817
  Transmission Date: 20221027
  Serious: Yes (Other)
  Sender: FDA-Public Use
  Company Number: CN-BAXTER-2022BAX017456

PATIENT
  Age: 13 Year
  Sex: Male
  Weight: 48.5 kg

DRUGS (9)
  1. IFOSFAMIDE [Suspect]
     Active Substance: IFOSFAMIDE
     Indication: Pineal neoplasm
     Dosage: 2 G, QD DILUTED WITH 0.9% NS 100ML, SECOND CHEMOTHERAPY
     Route: 041
     Dates: start: 20220706, end: 20220710
  2. SODIUM CHLORIDE [Suspect]
     Active Substance: SODIUM CHLORIDE
     Indication: Medication dilution
     Dosage: 500 ML, QD, PRIOR REGIMEN CAUSED WBC DECREASED EPISODE
     Route: 041
  3. SODIUM CHLORIDE [Suspect]
     Active Substance: SODIUM CHLORIDE
     Dosage: 500 ML, QD, DILUTED WITH ETOPOSIDE D1-D5, PRIOR REGIMEN CAUSED WBC DECREASED EPISODE 1
     Route: 041
  4. SODIUM CHLORIDE [Suspect]
     Active Substance: SODIUM CHLORIDE
     Dosage: 100 ML, QD, DILUTED WITH IFOSFAMIDE 2 G, SECOND CHEMOTHERAPY
     Route: 041
     Dates: start: 20220706, end: 20220710
  5. SODIUM CHLORIDE [Suspect]
     Active Substance: SODIUM CHLORIDE
     Dosage: 500 ML, QD, DILUTED WITH ETOPOSIDE 0.1 G, SECOND CHEMOTHERAPY
     Route: 041
     Dates: start: 20220706, end: 20220710
  6. DEXTROSE MONOHYDRATE [Suspect]
     Active Substance: DEXTROSE MONOHYDRATE
     Indication: Medication dilution
     Dosage: DILUTED WITH CISPLATIN INJECTION 25MG, PRIOR REGIMEN CAUSED WBC DECREASED EPISODE 1
     Route: 065
  7. ETOPOSIDE [Suspect]
     Active Substance: ETOPOSIDE
     Indication: Pineal neoplasm
     Dosage: 0.1 G, QD, DILUTED WITH SODIUM CHLORIDE D1-D5, PRIOR REGIMEN CAUSED WBC DECREASED EPISODE 1
     Route: 041
  8. ETOPOSIDE [Suspect]
     Active Substance: ETOPOSIDE
     Dosage: 0.1 G, QD, DILUTED WITH 0.9% NS 500 ML, SECOND CHEMOTHERAPY
     Route: 041
     Dates: start: 20220706, end: 20220710
  9. CISPLATIN [Suspect]
     Active Substance: CISPLATIN
     Indication: Pineal neoplasm
     Dosage: 25 MG DILUTED WITH 5% GS, PRIOR REGIMEN CAUSED WBC DECREASED EPISODE 1
     Route: 065

REACTIONS (2)
  - White blood cell count decreased [Recovered/Resolved]
  - White blood cell count decreased [Recovering/Resolving]

NARRATIVE: CASE EVENT DATE: 20220711
